FAERS Safety Report 12915899 (Version 1)
Quarter: 2016Q4

REPORT INFORMATION
  Report Type: Spontaneous
  Country: IE (occurrence: IE)
  Receive Date: 20161104
  Receipt Date: 20161104
  Transmission Date: 20170207
  Serious: Yes (Disabling)
  Sender: FDA-Public Use
  Company Number: IE-BAYER-2016-206274

PATIENT
  Age: 19 Year
  Sex: Female

DRUGS (3)
  1. MICROLITE [Suspect]
     Active Substance: TECHNETIUM TC-99M ALBUMIN AGGREGATED
     Indication: PREMENSTRUAL SYNDROME
     Dosage: 1 DF, QD
     Route: 048
     Dates: start: 20160811, end: 20161016
  2. MICROLITE [Suspect]
     Active Substance: TECHNETIUM TC-99M ALBUMIN AGGREGATED
     Indication: DYSMENORRHOEA
  3. SERTRALINE [Concomitant]
     Active Substance: SERTRALINE HYDROCHLORIDE

REACTIONS (3)
  - Panic attack [Not Recovered/Not Resolved]
  - Off label use [None]
  - Anxiety [None]

NARRATIVE: CASE EVENT DATE: 20161016
